FAERS Safety Report 15386248 (Version 1)
Quarter: 2018Q3

REPORT INFORMATION
  Report Type: Spontaneous
  Country: US (occurrence: US)
  Receive Date: 20180914
  Receipt Date: 20180914
  Transmission Date: 20181010
  Serious: No
  Sender: FDA-Public Use
  Company Number: US-009507513-1808USA008517

PATIENT
  Age: 42 Year
  Sex: Female

DRUGS (2)
  1. FOLLISTIM [Suspect]
     Active Substance: FOLLITROPIN
     Indication: ASSISTED FERTILISATION
     Dosage: UNK
     Route: 058
     Dates: start: 201806, end: 201806
  2. FOLLISTIM [Suspect]
     Active Substance: FOLLITROPIN
     Dosage: 300 UNIT X 10 DAY
     Route: 058
     Dates: start: 20180813, end: 20180822

REACTIONS (2)
  - Product label issue [Unknown]
  - Drug effect incomplete [Unknown]

NARRATIVE: CASE EVENT DATE: 2018
